FAERS Safety Report 9574478 (Version 1)
Quarter: 2013Q4

REPORT INFORMATION
  Report Type: Spontaneous
  Country: US (occurrence: US)
  Receive Date: 20131001
  Receipt Date: 20131001
  Transmission Date: 20140711
  Serious: No
  Sender: FDA-Public Use
  Company Number: US-PURDUE-USA-2012-0084567

PATIENT
  Age: 65 Year
  Sex: Female

DRUGS (1)
  1. BUTRANS [Suspect]
     Indication: PAIN
     Dosage: 20 MCG/HR, UNK
     Route: 062
     Dates: start: 20120308

REACTIONS (6)
  - Drug effect decreased [Unknown]
  - Drug effect increased [Recovered/Resolved]
  - Inappropriate schedule of drug administration [Unknown]
  - Nausea [Recovered/Resolved]
  - Application site pruritus [Recovered/Resolved]
  - Application site rash [Not Recovered/Not Resolved]
